FAERS Safety Report 9540444 (Version 2)
Quarter: 2013Q4

REPORT INFORMATION
  Report Type: Spontaneous
  Country: CN (occurrence: CN)
  Receive Date: 20130920
  Receipt Date: 20131011
  Transmission Date: 20140711
  Serious: Yes (Hospitalization)
  Sender: FDA-Public Use
  Company Number: CN-GLAXOSMITHKLINE-B0923924A

PATIENT
  Age: 14 Year
  Sex: Female

DRUGS (2)
  1. LAMOTRIGINE [Suspect]
     Indication: EPILEPSY
     Dosage: 25MGD THREE TIMES PER DAY
     Route: 048
  2. SODIUM VALPROATE [Concomitant]
     Indication: EPILEPSY
     Route: 048

REACTIONS (4)
  - Henoch-Schonlein purpura [Recovered/Resolved]
  - Nephritis [Unknown]
  - Rash erythematous [Unknown]
  - Chromaturia [Unknown]
